FAERS Safety Report 9594935 (Version 3)
Quarter: 2013Q4

REPORT INFORMATION
  Report Type: Spontaneous
  Country: FR (occurrence: FR)
  Receive Date: 20131004
  Receipt Date: 20131016
  Transmission Date: 20140711
  Serious: Yes (Death, Hospitalization)
  Sender: FDA-Public Use
  Company Number: PHHY2013FR071242

PATIENT
  Age: 53 Year
  Sex: Female

DRUGS (20)
  1. NEORAL [Suspect]
     Route: 048
     Dates: start: 20130426
  2. INIPOMP [Suspect]
     Route: 042
     Dates: start: 201304, end: 20130629
  3. INEXIUM//ESOMEPRAZOLE MAGNESIUM [Suspect]
     Route: 048
  4. CYMEVAN [Suspect]
     Dosage: 450 MG, BID
     Dates: start: 20130603, end: 20130627
  5. BACTRIM [Suspect]
     Route: 048
     Dates: start: 20130624, end: 20130627
  6. VANCOMYCIN MYLAN [Suspect]
     Route: 042
     Dates: end: 20130624
  7. AMIKACIN [Suspect]
     Route: 042
     Dates: end: 20130624
  8. CLAVENTIN [Suspect]
     Route: 042
     Dates: start: 20130623
  9. CORTANCYL [Suspect]
     Route: 048
     Dates: start: 20130426
  10. INSULIN [Suspect]
     Route: 058
     Dates: start: 201304
  11. NORADRENALINE [Concomitant]
  12. SUFENTANIL [Concomitant]
  13. MIDAZOLAM [Concomitant]
  14. FOSCARNET [Concomitant]
  15. CEFEPIME [Concomitant]
  16. LEVEMIR [Concomitant]
     Dates: end: 20130522
  17. AMBISOME [Concomitant]
     Dates: end: 20130522
  18. ANCOTIL [Concomitant]
     Dates: end: 20130522
  19. CELLCEPT [Concomitant]
     Dates: end: 20130603
  20. AVLOCARDYL [Concomitant]

REACTIONS (5)
  - Shock [Fatal]
  - Anaemia [Fatal]
  - Diarrhoea [Fatal]
  - Thrombocytopenia [Fatal]
  - Neutropenia [Fatal]
